FAERS Safety Report 19165317 (Version 2)
Quarter: 2022Q1

REPORT INFORMATION
  Report Type: Spontaneous
  Country: US (occurrence: US)
  Receive Date: 20210421
  Receipt Date: 20220124
  Transmission Date: 20220423
  Serious: No
  Sender: FDA-Public Use
  Company Number: US-PFIZER INC-2021335034

PATIENT
  Age: 52 Year
  Sex: Female

DRUGS (1)
  1. XELJANZ XR [Suspect]
     Active Substance: TOFACITINIB CITRATE
     Indication: Rheumatoid arthritis
     Dosage: 11 MG, DAILY
     Route: 048
     Dates: start: 20210113, end: 20210331

REACTIONS (5)
  - Drug ineffective [Unknown]
  - Skin disorder [Unknown]
  - Condition aggravated [Unknown]
  - Discouragement [Unknown]
  - Loss of personal independence in daily activities [Unknown]
